FAERS Safety Report 7241125-5 (Version None)
Quarter: 2011Q1

REPORT INFORMATION
  Report Type: 
  Country: None (occurrence: None)
  Receive Date: 20110124
  Receipt Date: 20110118
  Transmission Date: 20110831
  Serious: Yes (Other)
  Sender: FDA-Public Use
  Company Number: CHPA2011US01154

PATIENT
  Age: 3 Year
  Sex: Female
  Weight: 11.338 kg

DRUGS (1)
  1. TRIAMINIC CHEST + NASAL CONGESTION [Suspect]
     Dosage: 1 TSP, ONCE/SINGLE
     Route: 048
     Dates: start: 20110118, end: 20110118

REACTIONS (7)
  - VOMITING [None]
  - OVERDOSE [None]
  - HEADACHE [None]
  - PNEUMONIA [None]
  - LETHARGY [None]
  - ABDOMINAL PAIN UPPER [None]
  - DIARRHOEA [None]
